FAERS Safety Report 4431790-X (Version None)
Quarter: 2004Q3

REPORT INFORMATION
  Report Type: 
  Country: None (occurrence: None)
  Receive Date: 20040818
  Receipt Date: 20040810
  Transmission Date: 20050211
  Serious: Yes (Death)
  Sender: FDA-Public Use
  Company Number: F01200402399

PATIENT
  Age: 76 Year
  Sex: Male

DRUGS (23)
  1. FONDPARINUX SODIUM-SOLUTION [Suspect]
     Indication: BONE OPERATION
     Dosage: 2.5 MG/2.5 MG SUBCUTANEOUS
     Route: 058
     Dates: start: 20040727, end: 20040730
  2. FONDPARINUX SODIUM-SOLUTION [Suspect]
     Indication: LIMB OPERATION
     Dosage: 2.5 MG/2.5 MG SUBCUTANEOUS
     Route: 058
     Dates: start: 20040727, end: 20040730
  3. FONDPARINUX SODIUM-SOLUTION [Suspect]
     Indication: BONE OPERATION
     Dosage: 2.5 MG/2.5 MG SUBCUTANEOUS
     Route: 058
     Dates: start: 20040801, end: 20040803
  4. FONDPARINUX SODIUM-SOLUTION [Suspect]
     Indication: LIMB OPERATION
     Dosage: 2.5 MG/2.5 MG SUBCUTANEOUS
     Route: 058
     Dates: start: 20040801, end: 20040803
  5. DIAZEPAM [Concomitant]
  6. PHENYTOIN [Concomitant]
  7. MAGENSIUM SULFATE [Concomitant]
  8. COLOXYL + SENNA [Concomitant]
  9. PRAZOSIN HCL [Concomitant]
  10. ACETAMINOPHEN W/ CODEINE [Concomitant]
  11. THIAMINE [Concomitant]
  12. CEFTRIAXONE [Concomitant]
  13. GENTAMYCIN SULFATE [Concomitant]
  14. ALLOPURINOL [Concomitant]
  15. ATENOLOL [Concomitant]
  16. CALTRATE (CALCIUM CARBONATE) [Concomitant]
  17. METRONIDAZOLE [Concomitant]
  18. PARACETAMOL [Concomitant]
  19. IRBESARTAN [Concomitant]
  20. RAMIPRIL [Concomitant]
  21. OMEPRAZOLE [Concomitant]
  22. MORPHINE [Concomitant]
  23. HALOPERIDOL [Concomitant]

REACTIONS (4)
  - COLONIC PSEUDO-OBSTRUCTION [None]
  - GASTRIC ULCER HAEMORRHAGE [None]
  - GASTROINTESTINAL HAEMORRHAGE [None]
  - HYPOXIC ENCEPHALOPATHY [None]
